FAERS Safety Report 14350747 (Version 1)
Quarter: 2018Q1

REPORT INFORMATION
  Report Type: Spontaneous
  Country: US (occurrence: US)
  Receive Date: 20180104
  Receipt Date: 20180104
  Transmission Date: 20180509
  Serious: No
  Sender: FDA-Public Use
  Company Number: US-GLAXOSMITHKLINE-US2018000305

PATIENT
  Age: 55 Year
  Sex: Female

DRUGS (3)
  1. ARNUITY ELLIPTA [Suspect]
     Active Substance: FLUTICASONE FUROATE
     Indication: ASTHMA
     Dosage: 1 PUFF(S), 1D
     Route: 055
     Dates: start: 20171219, end: 20171223
  2. VENTOLIN HFA [Concomitant]
     Active Substance: ALBUTEROL SULFATE
  3. RISPERDAL [Concomitant]
     Active Substance: RISPERIDONE

REACTIONS (2)
  - Eye pain [Recovering/Resolving]
  - Drug ineffective [Recovered/Resolved]

NARRATIVE: CASE EVENT DATE: 20171219
